FAERS Safety Report 7288545-0 (Version None)
Quarter: 2011Q1

REPORT INFORMATION
  Report Type: 
  Country: None (occurrence: None)
  Receive Date: 20110211
  Receipt Date: 20110210
  Transmission Date: 20110831
  Serious: Yes (Hospitalization)
  Sender: FDA-Public Use
  Company Number: DE-PFIZER INC-2006091562

PATIENT
  Age: 72 Year
  Sex: Male
  Weight: 74 kg

DRUGS (21)
  1. ACETYLCYSTEINE [Concomitant]
     Dates: start: 20060401
  2. ESOMEPRAZOLE [Concomitant]
     Route: 048
     Dates: start: 20060301
  3. METOCLOPRAMIDE HCL [Concomitant]
     Route: 048
     Dates: start: 20060301
  4. MOVICOL [Concomitant]
     Dates: start: 20060601
  5. SODIUM PICOSULFATE [Concomitant]
     Dates: start: 20060301, end: 20060401
  6. MOVICOL [Concomitant]
     Route: 048
     Dates: start: 20060301, end: 20060401
  7. PENICILLIN [Concomitant]
  8. PANTOPRAZOLE [Concomitant]
     Route: 048
     Dates: start: 20060201
  9. BISOPROLOL [Concomitant]
     Dates: start: 20060601
  10. PREGABALIN [Concomitant]
     Route: 048
     Dates: start: 20060301
  11. OXYCODONE HCL [Concomitant]
     Route: 048
     Dates: start: 20060301
  12. TINZAPARIN SODIUM [Concomitant]
     Dates: start: 20060601
  13. SUNITINIB MALATE [Suspect]
     Indication: METASTATIC RENAL CELL CARCINOMA
     Dosage: 50 MG, 1X/DAY
     Route: 048
     Dates: start: 20060404
  14. SODIUM PICOSULFATE [Concomitant]
     Dates: start: 20060601
  15. ASPIRIN [Concomitant]
     Dates: start: 20060614, end: 20060620
  16. DICLOFENAC [Concomitant]
     Route: 048
     Dates: start: 20050301, end: 20060301
  17. ACICLOVIR [Concomitant]
     Route: 048
     Dates: start: 20060401
  18. BETA-ACETYLDIGOXIN [Concomitant]
     Dates: start: 20050801
  19. METAMIZOLE [Concomitant]
     Route: 048
     Dates: start: 20060301
  20. DIMETICONE [Concomitant]
     Dates: start: 20060401
  21. METOPROLOL [Concomitant]
     Route: 048
     Dates: start: 20050301

REACTIONS (1)
  - PNEUMONIA [None]
